FAERS Safety Report 8272159-X (Version None)
Quarter: 2012Q2

REPORT INFORMATION
  Report Type: 
  Country: None (occurrence: None)
  Receive Date: 20120410
  Receipt Date: 20120320
  Transmission Date: 20120825
  Serious: No
  Sender: FDA-Public Use
  Company Number: US-ASTRAZENECA-2012SE19206

PATIENT
  Age: 73 Year
  Sex: Male

DRUGS (1)
  1. VANDETANIB [Suspect]
     Indication: THYROID CANCER
     Route: 048

REACTIONS (8)
  - DIARRHOEA [None]
  - MEMORY IMPAIRMENT [None]
  - DYSPNOEA [None]
  - FATIGUE [None]
  - DERMATITIS ACNEIFORM [None]
  - COUGH [None]
  - DIZZINESS [None]
  - NAUSEA [None]
